FAERS Safety Report 26016291 (Version 1)
Quarter: 2025Q4

REPORT INFORMATION
  Report Type: Spontaneous
  Country: US (occurrence: US)
  Receive Date: 20251110
  Receipt Date: 20251110
  Transmission Date: 20260118
  Serious: No
  Sender: ROCHE
  Company Number: US-ROCHE-10000422860

PATIENT
  Age: 71 Year
  Sex: Female
  Weight: 86.18 kg

DRUGS (3)
  1. ACTEMRA [Suspect]
     Active Substance: TOCILIZUMAB
     Indication: Rheumatoid arthritis
     Route: 058
     Dates: start: 202505
  2. HUMIRA [Concomitant]
     Active Substance: ADALIMUMAB
  3. FORTEO [Concomitant]
     Active Substance: TERIPARATIDE

REACTIONS (4)
  - Exposure via skin contact [Unknown]
  - Device issue [Unknown]
  - Accidental exposure to product [Unknown]
  - No adverse event [Unknown]

NARRATIVE: CASE EVENT DATE: 20251026
